FAERS Safety Report 7463269-5 (Version None)
Quarter: 2011Q2

REPORT INFORMATION
  Report Type: 
  Country: None (occurrence: None)
  Receive Date: 20110428
  Receipt Date: 20110420
  Transmission Date: 20111010
  Serious: Yes (Death, Hospitalization)
  Sender: FDA-Public Use
  Company Number: WAES 1001USA03633

PATIENT
  Age: 71 Year
  Sex: Female

DRUGS (10)
  1. VELCADE [Suspect]
     Indication: MULTIPLE MYELOMA
     Dosage: 2.2 MG/1X IV ; 2.2 MG/1X IV ; 2.2 MG/1X IV ; 2.2. MG/1X IV  ;2.2 MG/1X IV
     Route: 042
     Dates: start: 20100119, end: 20100119
  2. VELCADE [Suspect]
     Indication: MULTIPLE MYELOMA
     Dosage: 2.2 MG/1X IV ; 2.2 MG/1X IV ; 2.2 MG/1X IV ; 2.2. MG/1X IV  ;2.2 MG/1X IV
     Route: 042
     Dates: start: 20100115, end: 20100115
  3. VELCADE [Suspect]
     Indication: MULTIPLE MYELOMA
     Dosage: 2.2 MG/1X IV ; 2.2 MG/1X IV ; 2.2 MG/1X IV ; 2.2. MG/1X IV  ;2.2 MG/1X IV
     Route: 042
     Dates: start: 20100122, end: 20100122
  4. VELCADE [Suspect]
     Indication: MULTIPLE MYELOMA
     Dosage: 2.2 MG/1X IV ; 2.2 MG/1X IV ; 2.2 MG/1X IV ; 2.2. MG/1X IV  ;2.2 MG/1X IV
     Route: 042
     Dates: start: 20100112, end: 20100112
  5. VELCADE [Suspect]
     Indication: MULTIPLE MYELOMA
     Dosage: 2.2 MG/1X IV ; 2.2 MG/1X IV ; 2.2 MG/1X IV ; 2.2. MG/1X IV  ;2.2 MG/1X IV
     Route: 042
     Dates: start: 20100124, end: 20100124
  6. ALLOPURINOL [Concomitant]
  7. SULFAMETHOXAZOEL/TRIMETHOPRIM [Concomitant]
  8. ACYCLOVIR [Concomitant]
  9. CAP VORINOSTAT [Suspect]
     Indication: MULTIPLE MYELOMA
     Dosage: 400 MG/DAILY PO
     Route: 048
     Dates: start: 20100112, end: 20100124
  10. LASIX [Concomitant]

REACTIONS (5)
  - ANAEMIA [None]
  - VASCULAR ENCEPHALOPATHY [None]
  - CEREBRAL HAEMORRHAGE [None]
  - ASTHENIA [None]
  - THROMBOCYTOPENIA [None]
